FAERS Safety Report 8816856 (Version 1)
Quarter: 2012Q4

REPORT INFORMATION
  Report Type: Spontaneous
  Country: US (occurrence: None)
  Receive Date: 20121002
  Receipt Date: 20121002
  Transmission Date: 20130627
  Serious: Yes (Other)
  Sender: FDA-Public Use
  Company Number: None

PATIENT
  Age: 52 Year
  Sex: Female
  Weight: 47.63 kg

DRUGS (2)
  1. OXYCODONE [Suspect]
     Indication: DRUG USE FOR UNKNOWN INDICATION
     Dosage: 300 tabs monthly
     Dates: start: 20100101, end: 20120924
  2. MORPHINE SULFATE EXTENDED RELEASE [Suspect]
     Indication: DRUG USE FOR UNKNOWN INDICATION
     Dosage: 120 tabs monthly
     Dates: start: 20100101, end: 20120924

REACTIONS (1)
  - Incorrect dose administered [None]
